FAERS Safety Report 5472291-X (Version None)
Quarter: 2007Q3

REPORT INFORMATION
  Report Type: 
  Country: None (occurrence: None)
  Receive Date: 20070925
  Receipt Date: 20070914
  Transmission Date: 20080115
  Serious: Yes (Other)
  Sender: FDA-Public Use
  Company Number: CHPA2007US09720

PATIENT
  Age: 2 Year
  Sex: Female

DRUGS (1)
  1. NICOTINE [Suspect]
     Dosage: VIA FALSA

REACTIONS (2)
  - ACCIDENTAL DRUG INTAKE BY CHILD [None]
  - NO ADVERSE DRUG REACTION [None]
